FAERS Safety Report 9221825 (Version 2)
Quarter: 2014Q1

REPORT INFORMATION
  Report Type: Report from Study
  Country: BR (occurrence: BR)
  Receive Date: 20130410
  Receipt Date: 20140127
  Transmission Date: 20141002
  Serious: Yes (Other)
  Sender: FDA-Public Use
  Company Number: BR-US-EMD SERONO, INC.-7195160

PATIENT
  Age: 29 Year
  Sex: Female

DRUGS (3)
  1. REBIF [Suspect]
     Indication: MULTIPLE SCLEROSIS
     Dates: start: 20100520
  2. GARDENAL [Concomitant]
     Indication: CONVULSION
  3. TRILEOTAL (TRILEPTAL) [Concomitant]
     Indication: CONVULSION

REACTIONS (1)
  - Lymphadenopathy [Unknown]
